FAERS Safety Report 7626211-X (Version None)
Quarter: 2011Q3

REPORT INFORMATION
  Report Type: 
  Country: None (occurrence: None)
  Receive Date: 20110721
  Receipt Date: 20110708
  Transmission Date: 20111222
  Serious: Yes (Other)
  Sender: FDA-Public Use
  Company Number: PHHY2011US61232

PATIENT
  Sex: Male

DRUGS (4)
  1. NAPROXEN (ALEVE) [Concomitant]
  2. ASPIRIN [Concomitant]
  3. RECLAST [Suspect]
     Indication: OSTEOPENIA
     Dosage: ONCE YEARLY
     Route: 042
     Dates: start: 20110701
  4. MULTI-VITAMINS [Concomitant]

REACTIONS (2)
  - CONTUSION [None]
  - SKIN DISCOLOURATION [None]
